FAERS Safety Report 6294951-3 (Version None)
Quarter: 2009Q3

REPORT INFORMATION
  Report Type: 
  Country: None (occurrence: None)
  Receive Date: 20090803
  Receipt Date: 20090727
  Transmission Date: 20100115
  Serious: Yes (Other)
  Sender: FDA-Public Use
  Company Number: IE-BAYER-200912563BNE

PATIENT
  Age: 37 Year
  Sex: Female

DRUGS (1)
  1. BETAFERON [Suspect]
     Indication: MULTIPLE SCLEROSIS
     Dosage: TITRATING DOSE
     Route: 058
     Dates: start: 20090408

REACTIONS (2)
  - CHEST DISCOMFORT [None]
  - CHEST PAIN [None]
